FAERS Safety Report 8675793 (Version 4)
Quarter: 2013Q2

REPORT INFORMATION
  Report Type: Spontaneous
  Country: US (occurrence: US)
  Receive Date: 20120720
  Receipt Date: 20130510
  Transmission Date: 20140414
  Serious: Yes (Death, Hospitalization)
  Sender: FDA-Public Use
  Company Number: US-B.I. PHARMACEUTICALS,INC./RIDGEFIELD-2012-BP-16081BP

PATIENT
  Sex: Male
  Weight: 106.59 kg

DRUGS (22)
  1. PRADAXA [Suspect]
     Indication: ATRIAL FIBRILLATION
     Dosage: 150 MG
     Dates: start: 201106, end: 20110821
  2. PRADAXA [Suspect]
     Indication: ANTICOAGULANT THERAPY
  3. ARICEPT [Concomitant]
  4. CITALOPRAM [Concomitant]
  5. ISOSORBIDE [Concomitant]
  6. JANUVIA [Concomitant]
  7. LANTUS [Concomitant]
  8. LISINOPRIL [Concomitant]
  9. NITROQUICK [Concomitant]
  10. POTASSIUM CHLORIDE [Concomitant]
  11. PULMICORT [Concomitant]
  12. SIMVASTATIN [Concomitant]
  13. TORSEMIDE [Concomitant]
  14. VERAPAMIL [Concomitant]
  15. ATACAND [Concomitant]
  16. COREG [Concomitant]
  17. ASPIRIN [Concomitant]
  18. PLAVIX [Concomitant]
  19. LORTAB [Concomitant]
  20. COMBIVENT [Concomitant]
  21. HYDROCHLOROTHIAZIDE [Concomitant]
  22. ALBUTEROL [Concomitant]

REACTIONS (3)
  - Multi-organ failure [Fatal]
  - Rectal haemorrhage [Unknown]
  - Large intestinal haemorrhage [Unknown]
